FAERS Safety Report 7908510-7 (Version None)
Quarter: 2011Q4

REPORT INFORMATION
  Report Type: 
  Country: None (occurrence: None)
  Receive Date: 20111111
  Receipt Date: 20111101
  Transmission Date: 20120403
  Serious: Yes (Other)
  Sender: FDA-Public Use
  Company Number: US-BAYER-2010-002225

PATIENT
  Age: 35 Year
  Sex: Female
  Weight: 102.49 kg

DRUGS (18)
  1. LEXAPRO [Concomitant]
     Indication: STRESS
  2. NEURONTIN [Concomitant]
  3. LEVSIN SL [Concomitant]
     Indication: IRRITABLE BOWEL SYNDROME
     Dosage: 0.125 MG, QID
     Route: 060
  4. ALPRAZOLAM [Concomitant]
     Route: 048
  5. CLARINEX [LORATADINE,PSEUDOEPHEDRINE SULFATE] [Concomitant]
     Route: 048
  6. VITAMIN TAB [Concomitant]
  7. LEXAPRO [Concomitant]
     Indication: DEPRESSION
     Dosage: 10 MG, QD
     Route: 048
  8. TRAZODONE HCL [Concomitant]
  9. AMBIEN [Concomitant]
     Indication: SLEEP DISORDER
     Dosage: 10 MG, QD
     Route: 048
  10. LORAZEPAM [Concomitant]
  11. CHEMOTHERAPEUTICS NOS [Concomitant]
  12. YASMIN [Suspect]
     Indication: MENSTRUAL CYCLE MANAGEMENT
     Dosage: UNK
     Dates: start: 19940101, end: 20070101
  13. LOMOTIL [DIPHENOXYLATE HYDROCHLORIDE] [Concomitant]
  14. BUTALBITAL ACETAMINOPHEN AND CAFFEINE [Concomitant]
     Indication: HEADACHE
     Dosage: 50 MG, PRN
     Route: 048
  15. FLEXERIL [Concomitant]
     Indication: BACK PAIN
     Dosage: 10 MG, TID
     Route: 048
  16. HYDROCODONE BITARTRATE [Concomitant]
  17. RANITIDINE HYDROCHLORIDE [Concomitant]
     Indication: GASTROOESOPHAGEAL REFLUX DISEASE
     Dosage: 150 MG, BID
  18. RHINOCORT [Concomitant]
     Indication: ALLERGIC SINUSITIS
     Dosage: 32 ?G, QID
     Route: 045

REACTIONS (14)
  - CHOLECYSTITIS CHRONIC [None]
  - ABDOMINAL DISTENSION [None]
  - DEPRESSION [None]
  - THROMBOSIS [None]
  - CONSTIPATION [None]
  - DIARRHOEA [None]
  - DEEP VEIN THROMBOSIS [None]
  - ANXIETY [None]
  - DYSPEPSIA [None]
  - CHOLECYSTECTOMY [None]
  - FLATULENCE [None]
  - JUGULAR VEIN THROMBOSIS [None]
  - AXILLARY VEIN THROMBOSIS [None]
  - SUBCLAVIAN VEIN THROMBOSIS [None]
